FAERS Safety Report 11741523 (Version 6)
Quarter: 2017Q3

REPORT INFORMATION
  Report Type: Report from Study
  Country: JP (occurrence: JP)
  Receive Date: 20151116
  Receipt Date: 20170915
  Transmission Date: 20171127
  Serious: Yes (Death, Other)
  Sender: FDA-Public Use
  Company Number: PHJP2015JP020077

PATIENT
  Age: 66 Year
  Sex: Male

DRUGS (8)
  1. FARYDAK [Suspect]
     Active Substance: PANOBINOSTAT
     Indication: PLASMA CELL MYELOMA
     Dosage: 20 MG, QD, (3 ADMINISTRATIONS PER CYCLE)
     Route: 048
     Dates: start: 20151005, end: 20151011
  2. BORTEZOMIB [Suspect]
     Active Substance: BORTEZOMIB
     Dosage: 1.3 MG/M2, QW2
     Route: 058
     Dates: start: 20151019, end: 20151028
  3. BORTEZOMIB [Suspect]
     Active Substance: BORTEZOMIB
     Dosage: 1.3 MG/M2, QW2
     Route: 058
     Dates: start: 20151005, end: 20151011
  4. FARYDAK [Suspect]
     Active Substance: PANOBINOSTAT
     Dosage: 20 MG, QD, (6 ADMINISTRATION PER CYCLE)
     Route: 048
     Dates: start: 20151019, end: 20151028
  5. BORTEZOMIB [Suspect]
     Active Substance: BORTEZOMIB
     Indication: PLASMA CELL MYELOMA
     Dosage: 1.3 MG/M2, QW2
     Route: 058
     Dates: start: 20140203
  6. DEXAMETHASONE. [Suspect]
     Active Substance: DEXAMETHASONE
     Indication: PLASMA CELL MYELOMA
     Dosage: 40 MG, QD
     Route: 048
     Dates: start: 20140120
  7. DEXAMETHASONE. [Suspect]
     Active Substance: DEXAMETHASONE
     Dosage: 40 MG, QD
     Route: 048
     Dates: start: 20151005, end: 20151011
  8. DEXAMETHASONE. [Suspect]
     Active Substance: DEXAMETHASONE
     Dosage: 40 MG, QD
     Route: 048
     Dates: start: 20151019, end: 20151028

REACTIONS (12)
  - Cardiac failure [Fatal]
  - Plasma cell myeloma [Fatal]
  - Fatigue [Fatal]
  - Pancytopenia [Fatal]
  - Blood pressure decreased [Fatal]
  - Vomiting [Fatal]
  - Malignant neoplasm progression [Fatal]
  - Depressed level of consciousness [Fatal]
  - General physical health deterioration [Unknown]
  - Nausea [Fatal]
  - Interstitial lung disease [Fatal]
  - Hypoxia [Fatal]

NARRATIVE: CASE EVENT DATE: 20151011
